FAERS Safety Report 6184337-4 (Version None)
Quarter: 2009Q2

REPORT INFORMATION
  Report Type: 
  Country: None (occurrence: None)
  Receive Date: 20090507
  Receipt Date: 20090507
  Transmission Date: 20091009
  Serious: Yes (Life-Threatening, Other)
  Sender: FDA-Public Use
  Company Number: None

PATIENT
  Sex: Male
  Weight: 29.4838 kg

DRUGS (3)
  1. ZYRTEC [Suspect]
     Indication: SEASONAL ALLERGY
     Dosage: 10 MG. 1 TABLET/DAY
     Dates: start: 20080401
  2. ZYRTEC [Suspect]
     Indication: SEASONAL ALLERGY
     Dosage: 10 MG. 1 TABLET/DAY
     Dates: start: 20080501
  3. ZYRTEC [Suspect]
     Indication: SEASONAL ALLERGY
     Dosage: 10 MG. 1 TABLET/DAY
     Dates: start: 20080601

REACTIONS (2)
  - HYPERSENSITIVITY [None]
  - PRODUCT LABEL ISSUE [None]
